FAERS Safety Report 6517009-4 (Version None)
Quarter: 2009Q4

REPORT INFORMATION
  Report Type: 
  Country: None (occurrence: None)
  Receive Date: 20091223
  Receipt Date: 20091214
  Transmission Date: 20100525
  Serious: Yes (Death, Other)
  Sender: FDA-Public Use
  Company Number: GXKR2009US13445

PATIENT
  Age: 65 Year
  Sex: Female

DRUGS (4)
  1. PREDNISONE TAB [Suspect]
     Indication: POLYMYOSITIS
     Route: 065
  2. AZATHIOPRINE [Suspect]
     Indication: POLYMYOSITIS
     Route: 065
  3. METHOTREXATE (NGX) [Suspect]
     Indication: POLYMYOSITIS
  4. CYCLOPHOSPHAMIDE [Concomitant]
     Indication: POLYMYOSITIS

REACTIONS (10)
  - APHASIA [None]
  - BONE MARROW FAILURE [None]
  - CONFUSIONAL STATE [None]
  - COORDINATION ABNORMAL [None]
  - EPSTEIN-BARR VIRUS ASSOCIATED LYMPHOPROLIFERATIVE DISORDER [None]
  - ERYTHROPOIESIS ABNORMAL [None]
  - GAIT DISTURBANCE [None]
  - METASTASIS [None]
  - PARAESTHESIA [None]
  - PULMONARY FIBROSIS [None]
